FAERS Safety Report 19618222 (Version 1)
Quarter: 2021Q3

REPORT INFORMATION
  Report Type: Spontaneous
  Country: US (occurrence: US)
  Receive Date: 20210727
  Receipt Date: 20210727
  Transmission Date: 20211014
  Serious: No
  Sender: FDA-Public Use
  Company Number: US-ROCHE-2709114

PATIENT
  Age: 38 Year
  Sex: Female

DRUGS (3)
  1. KEPPRA [Concomitant]
     Active Substance: LEVETIRACETAM
  2. TUKYSA [Suspect]
     Active Substance: TUCATINIB
     Indication: BREAST CANCER
     Route: 065
  3. XELODA [Suspect]
     Active Substance: CAPECITABINE
     Indication: BREAST CANCER
     Route: 065

REACTIONS (10)
  - Paraesthesia [Unknown]
  - Dysarthria [Unknown]
  - Balance disorder [Unknown]
  - Abdominal distension [Recovered/Resolved]
  - Hypoaesthesia [Unknown]
  - Feeling abnormal [Unknown]
  - Lethargy [Unknown]
  - Somnolence [Unknown]
  - Paraesthesia oral [Unknown]
  - Diarrhoea [Recovered/Resolved]

NARRATIVE: CASE EVENT DATE: 20200807
